FAERS Safety Report 10429824 (Version 1)
Quarter: 2014Q3

REPORT INFORMATION
  Report Type: Spontaneous
  Country: US (occurrence: None)
  Receive Date: 20140812
  Receipt Date: 20140812
  Transmission Date: 20150326
  Serious: Yes (Other)
  Sender: FDA-Public Use
  Company Number: 2001022

PATIENT
  Sex: Male

DRUGS (1)
  1. LIDOCAINE HCL + EPHENEPHRINE [Suspect]
     Active Substance: EPINEPHRINE\LIDOCAINE HYDROCHLORIDE
     Indication: OTOPLASTY
     Dosage: 1%/1:100,000,USP MULTIDOSE VIALS?200ML

REACTIONS (1)
  - Adverse reaction [None]
